FAERS Safety Report 6122403-X (Version None)
Quarter: 2009Q1

REPORT INFORMATION
  Report Type: 
  Country: None (occurrence: None)
  Receive Date: 20090318
  Receipt Date: 20090127
  Transmission Date: 20090719
  Serious: No
  Sender: FDA-Public Use
  Company Number: US-ASTRAZENECA-2009UW02603

PATIENT

DRUGS (1)
  1. SYMBICORT [Suspect]
     Dosage: 2 PUFFS
     Route: 055

REACTIONS (2)
  - ANGIOEDEMA [None]
  - SCOTOMA [None]
